FAERS Safety Report 13711841 (Version 1)
Quarter: 2017Q3

REPORT INFORMATION
  Report Type: Spontaneous
  Country: US (occurrence: US)
  Receive Date: 20170703
  Receipt Date: 20170703
  Transmission Date: 20171127
  Serious: No
  Sender: FDA-Public Use
  Company Number: US-JNJFOC-20170211743

PATIENT
  Age: 5 Decade
  Sex: Female

DRUGS (1)
  1. TOPAMAX [Suspect]
     Active Substance: TOPIRAMATE
     Indication: MIGRAINE
     Dosage: 50-100MG/ TWICE A DAY
     Route: 048

REACTIONS (1)
  - Tinnitus [Unknown]
